FAERS Safety Report 8074711-3 (Version None)
Quarter: 2012Q1

REPORT INFORMATION
  Report Type: 
  Country: None (occurrence: None)
  Receive Date: 20120126
  Receipt Date: 20120120
  Transmission Date: 20120608
  Serious: Yes (Other)
  Sender: FDA-Public Use
  Company Number: NL-ROCHE-1032237

PATIENT
  Sex: Female
  Weight: 57 kg

DRUGS (6)
  1. MABTHERA [Suspect]
     Indication: MALIGNANT LYMPHOID NEOPLASM
     Dosage: MOST RECENT DOSE ON 11 FEB 2011
     Route: 042
     Dates: start: 20110120
  2. DEXAMETHASONE [Suspect]
     Indication: MALIGNANT LYMPHOID NEOPLASM
     Dosage: MOST RECENT DOSE ON 24 JAN 2011
     Route: 048
     Dates: start: 20110121
  3. METHOTREXATE [Suspect]
     Indication: MALIGNANT LYMPHOID NEOPLASM
     Dosage: RECENT DOSE ON 06/FEB/2011
     Route: 042
     Dates: start: 20110206
  4. CYTARABINE [Suspect]
     Indication: MALIGNANT LYMPHOID NEOPLASM
     Dosage: MOST RECENT DOSE ON 22/JAN/2011
     Route: 042
     Dates: start: 20110122
  5. MABTHERA [Suspect]
     Dosage: MOST RECENT DOSE ON 25 JAN 2011
     Route: 042
     Dates: start: 20110125
  6. CISPLATIN [Suspect]
     Indication: MALIGNANT LYMPHOID NEOPLASM
     Route: 042
     Dates: start: 20110121

REACTIONS (1)
  - PULMONARY EMBOLISM [None]
